FAERS Safety Report 7250384-4 (Version None)
Quarter: 2011Q1

REPORT INFORMATION
  Report Type: 
  Country: None (occurrence: None)
  Receive Date: 20110128
  Receipt Date: 20110119
  Transmission Date: 20110831
  Serious: Yes (Hospitalization)
  Sender: FDA-Public Use
  Company Number: JP-ROCHE-687804

PATIENT
  Sex: Female
  Weight: 48 kg

DRUGS (42)
  1. TOCILIZUMAB [Suspect]
     Route: 041
     Dates: start: 20090309, end: 20090309
  2. TOCILIZUMAB [Suspect]
     Route: 041
     Dates: start: 20090511, end: 20090511
  3. PREDNISOLONE [Suspect]
     Dosage: DOSE FORM: PERORAL AGENT
     Route: 048
     Dates: start: 20100105, end: 20100201
  4. INSULIN [Concomitant]
     Route: 058
     Dates: start: 20090509, end: 20090529
  5. MELOXICAM [Concomitant]
     Route: 048
  6. TOCILIZUMAB [Suspect]
     Route: 041
     Dates: start: 20090615, end: 20090615
  7. TOCILIZUMAB [Suspect]
     Route: 041
     Dates: start: 20091104, end: 20091104
  8. LOXONIN [Concomitant]
     Route: 048
     Dates: start: 20090107, end: 20100308
  9. MUCOSTA [Concomitant]
     Dosage: DOSE FORM: PERORAL AGENT
     Route: 048
     Dates: start: 20090406, end: 20090801
  10. BUCILLAMINE [Concomitant]
     Route: 048
  11. ASPARA K [Concomitant]
     Route: 048
  12. PREDNISOLONE [Suspect]
     Dosage: DOSE FORM: PERORAL AGENT
     Route: 048
     Dates: start: 20090406, end: 20090510
  13. PREDNISOLONE [Suspect]
     Dosage: DOSE FORM: PERORAL AGENT
     Route: 048
     Dates: start: 20090511, end: 20091006
  14. CONTOMIN [Concomitant]
     Route: 048
  15. PYDOXAL [Concomitant]
     Route: 048
  16. TOCILIZUMAB [Suspect]
     Route: 041
     Dates: start: 20090812, end: 20090812
  17. PREDNISOLONE [Suspect]
     Indication: RHEUMATOID ARTHRITIS
     Dosage: DOSE FORM: PERORAL AGENT
     Route: 048
     Dates: start: 20090107, end: 20090405
  18. PREDNISOLONE [Suspect]
     Dosage: DOSE FORM: PERORAL AGENT
     Route: 048
     Dates: start: 20100202
  19. AZULFIDINE [Concomitant]
     Dosage: DOSE FORM: ENTERIC COATING DURG.
     Route: 048
     Dates: start: 20090107, end: 20100210
  20. DIAZEPAM [Concomitant]
     Route: 048
  21. TOCILIZUMAB [Suspect]
     Indication: RHEUMATOID ARTHRITIS
     Route: 041
     Dates: start: 20090209, end: 20090209
  22. TOCILIZUMAB [Suspect]
     Route: 041
     Dates: start: 20090406, end: 20090406
  23. TOCILIZUMAB [Suspect]
     Route: 041
     Dates: start: 20090909, end: 20090909
  24. TOCILIZUMAB [Suspect]
     Route: 041
     Dates: start: 20091007, end: 20091007
  25. TOCILIZUMAB [Suspect]
     Dosage: DRUG DISCONTINUED
     Route: 041
     Dates: start: 20100105, end: 20100105
  26. MUCOSTA [Concomitant]
     Dosage: DOSE FORM: PERORAL AGENT
     Route: 048
     Dates: start: 20090107, end: 20090405
  27. ALDACTONE [Concomitant]
     Route: 048
  28. LANSOPRAZOLE [Concomitant]
     Dosage: DRUG NAME REPORTED AS: LANSOPRAZOLE-OD
     Route: 048
  29. TOCILIZUMAB [Suspect]
     Route: 041
     Dates: start: 20090713, end: 20090713
  30. INSULIN [Concomitant]
     Route: 058
     Dates: start: 20090530
  31. FLUITRAN [Concomitant]
     Route: 048
  32. PERSANTIN [Concomitant]
     Route: 048
  33. LIVALO [Concomitant]
     Route: 048
  34. REBAMIPIDE [Concomitant]
     Route: 048
  35. ACTONEL [Concomitant]
     Route: 048
  36. BAKTAR [Concomitant]
     Route: 048
  37. TOCILIZUMAB [Suspect]
     Route: 041
     Dates: start: 20091202, end: 20091202
  38. PREDNISOLONE [Suspect]
     Dosage: DOSE FORM: PERORAL AGENT
     Route: 048
     Dates: start: 20091202, end: 20100104
  39. VITANEURIN [Concomitant]
     Route: 048
  40. PREDNISOLONE [Suspect]
     Dosage: DOSE FORM: PERORAL AGENT
     Route: 048
     Dates: start: 20091007, end: 20091201
  41. PREDNISOLONE [Suspect]
     Dosage: DOSE FORM: PERORAL AGENT
     Route: 048
     Dates: start: 20100101
  42. MUCOSTA [Concomitant]
     Dosage: DOSE FORM: PERORAL AGENT
     Route: 048
     Dates: start: 20090811, end: 20100210

REACTIONS (3)
  - DECUBITUS ULCER [None]
  - TUBERCULOUS PLEURISY [None]
  - RHEUMATOID ARTHRITIS [None]
